FAERS Safety Report 5719689-X (Version None)
Quarter: 2008Q2

REPORT INFORMATION
  Report Type: 
  Country: None (occurrence: None)
  Receive Date: 20080424
  Receipt Date: 20080417
  Transmission Date: 20081010
  Serious: Yes (Hospitalization)
  Sender: FDA-Public Use
  Company Number: 2007BI020741

PATIENT
  Sex: Female

DRUGS (1)
  1. AVONEX [Suspect]
     Indication: MULTIPLE SCLEROSIS
     Dosage: IM
     Route: 030
     Dates: start: 19991001

REACTIONS (4)
  - DEHYDRATION [None]
  - DIARRHOEA [None]
  - MULTIPLE SCLEROSIS [None]
  - VIRAL INFECTION [None]
